FAERS Safety Report 7245820-3 (Version None)
Quarter: 2011Q1

REPORT INFORMATION
  Report Type: 
  Country: None (occurrence: None)
  Receive Date: 20110126
  Receipt Date: 20110118
  Transmission Date: 20110831
  Serious: Yes (Other)
  Sender: FDA-Public Use
  Company Number: DE-ACTELION-A-CH2010-42899

PATIENT
  Age: 58 Year
  Sex: Female
  Weight: 56 kg

DRUGS (7)
  1. URSO FALK [Concomitant]
  2. ARCOXIA [Concomitant]
  3. BOSENTAN TABLET UNK MG DUO EU [Suspect]
     Indication: SKIN ULCER
     Dosage: 125 MG, BID
     Route: 048
     Dates: end: 20091001
  4. ENALAPRIL [Concomitant]
  5. BOSENTAN TABLET UNK MG DUO EU [Suspect]
     Dosage: 62.5 MG, BID
     Route: 048
     Dates: start: 20090826
  6. OMEPRAZOLE [Concomitant]
  7. DIPYRONE INJ [Concomitant]

REACTIONS (2)
  - BLOOD CHOLESTEROL INCREASED [None]
  - ABDOMINAL PAIN [None]
